FAERS Safety Report 8452860-5 (Version None)
Quarter: 2012Q2

REPORT INFORMATION
  Report Type: 
  Country: None (occurrence: None)
  Receive Date: 20120620
  Receipt Date: 20120522
  Transmission Date: 20120825
  Serious: No
  Sender: FDA-Public Use
  Company Number: US-VERTEX PHARMACEUTICALS INC.-AE-2012-006266

PATIENT
  Sex: Male
  Weight: 70.37 kg

DRUGS (6)
  1. INCIVEK [Suspect]
     Indication: HEPATITIS C
     Route: 048
     Dates: start: 20120319
  2. VIITAMIN C [Concomitant]
  3. PEG-INTRON [Concomitant]
     Indication: HEPATITIS C
     Dates: start: 20120319
  4. RIBAVIRIN [Concomitant]
     Indication: HEPATITIS C
     Route: 048
     Dates: start: 20120319
  5. SERTRALINE HYDROCHLORIDE [Concomitant]
  6. MULTI-VITAMINS [Concomitant]

REACTIONS (6)
  - WEIGHT DECREASED [None]
  - DERMATITIS [None]
  - GLOSSITIS [None]
  - PRURITUS [None]
  - INFLUENZA LIKE ILLNESS [None]
  - PSORIASIS [None]
